FAERS Safety Report 13347532 (Version 1)
Quarter: 2017Q1

REPORT INFORMATION
  Report Type: Spontaneous
  Country: US (occurrence: US)
  Receive Date: 20170317
  Receipt Date: 20170317
  Transmission Date: 20170428
  Serious: Yes (Hospitalization)
  Sender: FDA-Public Use
  Company Number: US-IGSA-GTI005208

PATIENT
  Age: 78 Year
  Sex: Male

DRUGS (1)
  1. GAMUNEX-C [Suspect]
     Active Substance: HUMAN IMMUNOGLOBULIN G
     Indication: IMMUNODEFICIENCY COMMON VARIABLE
     Dosage: DOSE UNIT:1.1 GRAM PER KILOGRAM
     Route: 042

REACTIONS (5)
  - Hyperammonaemia [Recovering/Resolving]
  - Encephalopathy [Recovering/Resolving]
  - Asthenia [Recovering/Resolving]
  - Mental status changes [Recovering/Resolving]
  - Decreased appetite [Recovering/Resolving]
